FAERS Safety Report 5105206-4 (Version None)
Quarter: 2006Q3

REPORT INFORMATION
  Report Type: 
  Country: None (occurrence: None)
  Receive Date: 20060911
  Receipt Date: 20060822
  Transmission Date: 20061208
  Serious: No
  Sender: FDA-Public Use
  Company Number: US200608004782

PATIENT
  Age: 37 Year
  Sex: Female

DRUGS (2)
  1. CYMBALTA [Suspect]
     Indication: DEPRESSION
     Dosage: 120 MG
     Dates: start: 20060101
  2. ABILIFY [Concomitant]

REACTIONS (1)
  - HEPATIC ENZYME INCREASED [None]
